FAERS Safety Report 6081657-9 (Version None)
Quarter: 2009Q1

REPORT INFORMATION
  Report Type: 
  Country: None (occurrence: None)
  Receive Date: 20090218
  Receipt Date: 20090209
  Transmission Date: 20090719
  Serious: Yes (Hospitalization, Other)
  Sender: FDA-Public Use
  Company Number: DE-ASTRAZENECA-2009PK00361

PATIENT
  Sex: Female
  Weight: 52 kg

DRUGS (8)
  1. SEROQUEL [Suspect]
     Indication: BIPOLAR DISORDER
     Route: 048
     Dates: start: 20081027, end: 20081029
  2. SEROQUEL [Suspect]
     Route: 048
     Dates: start: 20081107, end: 20081111
  3. MELNEURIN [Suspect]
     Route: 048
     Dates: start: 20081026, end: 20081120
  4. HALDOL [Suspect]
     Route: 048
     Dates: start: 20081024, end: 20081026
  5. HALDOL [Suspect]
     Route: 048
     Dates: start: 20081031, end: 20081123
  6. HALDOL [Suspect]
     Route: 048
     Dates: start: 20081130, end: 20081130
  7. LEVOTHYROXINE SODIUM [Concomitant]
     Route: 048
     Dates: start: 20081025
  8. PANTOZOL [Concomitant]
     Route: 048
     Dates: start: 20081025

REACTIONS (1)
  - LONG QT SYNDROME [None]
